APPROVED DRUG PRODUCT: LEVONORGESTREL
Active Ingredient: LEVONORGESTREL
Strength: 0.75MG
Dosage Form/Route: TABLET;ORAL
Application: A078666 | Product #001
Applicant: WATSON LABORATORIES INC
Approved: Jun 24, 2009 | RLD: No | RS: No | Type: DISCN